FAERS Safety Report 8927740 (Version 1)
Quarter: 2012Q4

REPORT INFORMATION
  Report Type: 
  Country: FR (occurrence: FR)
  Receive Date: 20121127
  Receipt Date: 20121127
  Transmission Date: 20130627
  Serious: Yes (Hospitalization)
  Sender: FDA-Public Use
  Company Number: PHHY2011FR105209

PATIENT
  Age: 52 Year
  Sex: Male

DRUGS (2)
  1. TASIGNA [Suspect]
     Indication: CHRONIC MYELOID LEUKAEMIA
     Dosage: 400 mg, BID
     Route: 048
     Dates: start: 200809, end: 201104
  2. TASIGNA [Suspect]
     Dosage: 600 mg, daily
     Route: 048
     Dates: start: 201104

REACTIONS (6)
  - Peripheral arterial occlusive disease [Unknown]
  - Peripheral artery thrombosis [Unknown]
  - Pain in extremity [Recovered/Resolved with Sequelae]
  - Peripheral artery stenosis [Unknown]
  - Arterial disorder [Unknown]
  - Xanthelasma [Unknown]
